FAERS Safety Report 6124798-X (Version None)
Quarter: 2009Q1

REPORT INFORMATION
  Report Type: 
  Country: None (occurrence: None)
  Receive Date: 20090319
  Receipt Date: 20090311
  Transmission Date: 20090719
  Serious: No
  Sender: FDA-Public Use
  Company Number: US-JNJFOC-20090303580

PATIENT
  Sex: Female

DRUGS (7)
  1. INVEGA [Suspect]
     Indication: BIPOLAR I DISORDER
     Route: 048
  2. SYNTHROID [Concomitant]
     Indication: HYPOTHYROIDISM
     Route: 048
  3. HALDOL [Concomitant]
     Indication: BIPOLAR I DISORDER
     Route: 048
  4. LITHIUM [Concomitant]
     Indication: BIPOLAR I DISORDER
     Dosage: 300 MG ONCE A DAY AND 600 MG ONCE A DAY
  5. ALBUTEROL [Concomitant]
     Indication: CHRONIC OBSTRUCTIVE PULMONARY DISEASE
  6. SINGULAIR [Concomitant]
     Indication: CHRONIC OBSTRUCTIVE PULMONARY DISEASE
  7. ADVAIR HFA [Concomitant]
     Indication: CHRONIC OBSTRUCTIVE PULMONARY DISEASE

REACTIONS (6)
  - AFFECT LABILITY [None]
  - BLOOD PROLACTIN INCREASED [None]
  - CRYING [None]
  - DISTURBANCE IN ATTENTION [None]
  - FATIGUE [None]
  - IRRITABILITY [None]
